FAERS Safety Report 15098217 (Version 1)
Quarter: 2018Q3

REPORT INFORMATION
  Report Type: Spontaneous
  Country: CR (occurrence: CR)
  Receive Date: 20180702
  Receipt Date: 20180702
  Transmission Date: 20181010
  Serious: Yes (Other)
  Sender: FDA-Public Use
  Company Number: CR-PFIZER INC-2018261879

PATIENT
  Age: 60 Year
  Sex: Male

DRUGS (3)
  1. CELEBRA [Suspect]
     Active Substance: CELECOXIB
     Indication: BACK PAIN
     Dosage: 200 MG, EVERY 12 HOURS
  2. CARDURA [Suspect]
     Active Substance: DOXAZOSIN MESYLATE
     Indication: BENIGN PROSTATIC HYPERPLASIA
     Dosage: 2 MG, UNKNOWN FREQUENCY
  3. LYRICA [Suspect]
     Active Substance: PREGABALIN
     Indication: BACK PAIN
     Dosage: 150 MG, UNKNOWN FREQUENCY

REACTIONS (3)
  - Prostate cancer [Unknown]
  - Metastases to central nervous system [Unknown]
  - Metastases to bone [Unknown]
